FAERS Safety Report 8956504 (Version 1)
Quarter: 2012Q4

REPORT INFORMATION
  Report Type: 
  Country: BR (occurrence: BR)
  Receive Date: 20121210
  Receipt Date: 20121210
  Transmission Date: 20130627
  Serious: Yes (Other)
  Sender: FDA-Public Use
  Company Number: BR-PFIZER INC-2012306471

PATIENT
  Age: 48 Year
  Sex: Male

DRUGS (1)
  1. XALATAN [Suspect]
     Dosage: 1 Gtt in each eye, 3x/day
     Route: 047
     Dates: start: 20071204

REACTIONS (2)
  - Cataract [Unknown]
  - Overdose [Not Recovered/Not Resolved]
